FAERS Safety Report 5620719-4 (Version None)
Quarter: 2008Q1

REPORT INFORMATION
  Report Type: 
  Country: None (occurrence: None)
  Receive Date: 20080208
  Receipt Date: 20080206
  Transmission Date: 20080703
  Serious: Yes (Life-Threatening, Hospitalization)
  Sender: FDA-Public Use
  Company Number: DE-MERCK-0801DEU00020

PATIENT
  Age: 6 Month
  Sex: Male
  Weight: 7 kg

DRUGS (10)
  1. SINGULAIR [Suspect]
     Indication: BRONCHIAL OBSTRUCTION
     Route: 048
     Dates: start: 20080102, end: 20080102
  2. SINGULAIR [Suspect]
     Indication: INFECTION
     Route: 048
     Dates: start: 20080102, end: 20080102
  3. AZITHROMYCIN [Concomitant]
     Indication: PNEUMONIA
     Route: 048
     Dates: start: 20071222, end: 20071224
  4. CEFUROXIME [Concomitant]
     Indication: PNEUMONIA
     Route: 042
     Dates: start: 20071224, end: 20080102
  5. ATROVENT [Concomitant]
     Indication: BRONCHIAL OBSTRUCTION
     Dates: start: 20071224, end: 20080106
  6. SULTANOL [Concomitant]
     Indication: BRONCHIAL OBSTRUCTION
     Dates: start: 20071224, end: 20080106
  7. CHLORAL HYDRATE [Concomitant]
     Indication: RESTLESSNESS
     Route: 065
     Dates: start: 20071227, end: 20071229
  8. THEOPHYLLINE [Concomitant]
     Indication: BRONCHIAL OBSTRUCTION
     Route: 042
     Dates: start: 20071226, end: 20071231
  9. OMEPRAZOLE [Concomitant]
     Indication: GASTROOESOPHAGEAL REFLUX DISEASE
     Route: 048
     Dates: start: 20070101
  10. ZYMAFLUOR [Concomitant]
     Indication: PROPHYLAXIS
     Route: 048
     Dates: start: 20070601

REACTIONS (2)
  - CONVULSION [None]
  - HYPOGLYCAEMIA [None]
